FAERS Safety Report 10623132 (Version 3)
Quarter: 2016Q2

REPORT INFORMATION
  Report Type: Report from Study
  Country: DE (occurrence: DE)
  Receive Date: 20141203
  Receipt Date: 20160616
  Transmission Date: 20160815
  Serious: Yes (Hospitalization)
  Sender: FDA-Public Use
  Company Number: DE-OTSUKA-US-2014-14318

PATIENT
  Age: 36 Year
  Sex: Male
  Weight: 118 kg

DRUGS (5)
  1. ABILIFY [Concomitant]
     Active Substance: ARIPIPRAZOLE
     Indication: SCHIZOPHRENIA
     Dosage: 10 MG
     Route: 048
     Dates: start: 20141029
  2. FLUPENTIXOL DECANOATE [Concomitant]
     Active Substance: FLUPENTIXOL DECANOATE
     Indication: SCHIZOPHRENIA
     Dosage: 10 MG, EVERY 14 DAYS
     Route: 030
     Dates: start: 20121017, end: 20141027
  3. QUETIAPINE. [Concomitant]
     Active Substance: QUETIAPINE
     Indication: SCHIZOPHRENIA
     Dosage: 100 MG
     Route: 048
     Dates: start: 20140818
  4. ARIPIPRAZOLE. [Suspect]
     Active Substance: ARIPIPRAZOLE
     Indication: SCHIZOPHRENIA
     Dosage: 400 MG, QM
     Route: 030
     Dates: start: 20141111, end: 20141125
  5. FLUPENTIXOL TABLETS [Concomitant]
     Indication: SCHIZOPHRENIA
     Dosage: 5 MG, QD
     Route: 048
     Dates: start: 20121004, end: 20141029

REACTIONS (1)
  - Mania [Recovered/Resolved]

NARRATIVE: CASE EVENT DATE: 20141125
